FAERS Safety Report 5132257-6 (Version None)
Quarter: 2006Q4

REPORT INFORMATION
  Report Type: 
  Country: None (occurrence: None)
  Receive Date: 20061017
  Receipt Date: 20061003
  Transmission Date: 20070319
  Serious: Yes (Hospitalization)
  Sender: FDA-Public Use
  Company Number: 2006PV022483

PATIENT
  Age: 57 Year
  Sex: Male
  Weight: 133.8111 kg

DRUGS (6)
  1. BYETTA [Suspect]
     Indication: DIABETES MELLITUS NON-INSULIN-DEPENDENT
     Dosage: 5 MCG; BID; SC
     Route: 058
     Dates: start: 20060502, end: 20060509
  2. BYETTA [Suspect]
     Indication: DIABETES MELLITUS NON-INSULIN-DEPENDENT
     Dosage: 5 MCG; BID; SC
     Route: 058
     Dates: start: 20060726, end: 20060919
  3. HUMALOG [Concomitant]
  4. NOVOLOG [Concomitant]
  5. AMARYL [Concomitant]
  6. GLIPIZIDE [Concomitant]

REACTIONS (2)
  - FACIAL PALSY [None]
  - PULMONARY EMBOLISM [None]
